FAERS Safety Report 9924129 (Version 1)
Quarter: 2014Q1

REPORT INFORMATION
  Report Type: Spontaneous
  Country: US (occurrence: US)
  Receive Date: 20140226
  Receipt Date: 20140226
  Transmission Date: 20141002
  Serious: Yes (Death)
  Sender: FDA-Public Use
  Company Number: US-BEH-2014040829

PATIENT
  Age: 32 Year
  Sex: Female

DRUGS (4)
  1. IVIG [Suspect]
     Indication: ANTIPHOSPHOLIPID SYNDROME
     Route: 042
  2. IVIG [Suspect]
     Indication: ANTIPHOSPHOLIPID SYNDROME
     Route: 042
  3. RITUXIMAB [Concomitant]
     Indication: ANTIPHOSPHOLIPID SYNDROME
     Dosage: ONLY 3 OF 4 DOSES OF RITUXIMAB RECEIVED
  4. RITUXIMAB [Concomitant]
     Indication: ANTIPHOSPHOLIPID SYNDROME
     Dosage: ONLY 3 OF 4 DOSES OF RITUXIMAB RECEIVED

REACTIONS (1)
  - Drug ineffective for unapproved indication [Fatal]
